FAERS Safety Report 9637787 (Version 3)
Quarter: 2013Q4

REPORT INFORMATION
  Report Type: Spontaneous
  Country: FR (occurrence: FR)
  Receive Date: 20131022
  Receipt Date: 20131024
  Transmission Date: 20140711
  Serious: Yes (Death, Other)
  Sender: FDA-Public Use
  Company Number: FR-BAYER-2013-018354

PATIENT
  Age: 72 Year
  Sex: Female

DRUGS (5)
  1. XARELTO [Suspect]
     Indication: ATRIAL FIBRILLATION
     Dosage: 20 MG, QD
     Route: 048
     Dates: start: 20130207, end: 20130207
  2. XARELTO [Interacting]
     Indication: CEREBROVASCULAR ACCIDENT PROPHYLAXIS
  3. PLAVIX [Interacting]
     Indication: ACUTE CORONARY SYNDROME
     Dosage: UNK
     Route: 048
     Dates: start: 20130206, end: 20130207
  4. ACETYLSALICYLIC ACID [Interacting]
     Indication: ACUTE CORONARY SYNDROME
     Dosage: UNK
     Route: 048
     Dates: start: 20130206, end: 20130207
  5. LOVENOX [Interacting]
     Indication: ACUTE CORONARY SYNDROME
     Dosage: 60 MG, BID
     Route: 058
     Dates: start: 20130206, end: 20130207

REACTIONS (2)
  - Haemorrhagic stroke [Fatal]
  - Drug interaction [None]
